FAERS Safety Report 6727540-4 (Version None)
Quarter: 2010Q2

REPORT INFORMATION
  Report Type: 
  Country: None (occurrence: None)
  Receive Date: 20100517
  Receipt Date: 20100504
  Transmission Date: 20101027
  Serious: Yes (Hospitalization)
  Sender: FDA-Public Use
  Company Number: PHHY2010US29133

PATIENT
  Sex: Female

DRUGS (2)
  1. EXJADE [Suspect]
     Indication: LYMPHATIC SYSTEM NEOPLASM
     Dosage: 500 MG, QD
     Route: 048
  2. EXJADE [Suspect]
     Indication: HAEMATOPOIETIC NEOPLASM

REACTIONS (1)
  - SURGERY [None]
